FAERS Safety Report 7864189 (Version 2)
Quarter: 2013Q4

REPORT INFORMATION
  Report Type: Spontaneous
  Country: CA (occurrence: CA)
  Receive Date: 20110321
  Receipt Date: 20131105
  Transmission Date: 20140711
  Serious: Yes (Other)
  Sender: FDA-Public Use
  Company Number: CA-ROCHE-752601

PATIENT
  Age: 56 Year
  Sex: Female

DRUGS (2)
  1. XENICAL [Suspect]
     Indication: WEIGHT CONTROL
     Route: 048
     Dates: start: 2010, end: 2010
  2. METFORMIN [Interacting]
     Indication: TYPE 2 DIABETES MELLITUS
     Route: 048

REACTIONS (4)
  - Renal failure [Unknown]
  - Glomerular filtration rate decreased [Recovered/Resolved]
  - Drug interaction [Unknown]
  - Renal impairment [Recovering/Resolving]
